FAERS Safety Report 7494311-3 (Version None)
Quarter: 2011Q2

REPORT INFORMATION
  Report Type: 
  Country: None (occurrence: None)
  Receive Date: 20110520
  Receipt Date: 20110517
  Transmission Date: 20111010
  Serious: Yes (Death)
  Sender: FDA-Public Use
  Company Number: PHHY2011US41779

PATIENT
  Age: 19 Year
  Sex: Male

DRUGS (2)
  1. AMLODIPINE [Suspect]
     Dosage: 70 DF, UNK
  2. LISINOPRIL [Suspect]
     Dosage: 30 DF, UNK

REACTIONS (5)
  - HYPOTENSION [None]
  - SUICIDE ATTEMPT [None]
  - OVERDOSE [None]
  - PULSE ABSENT [None]
  - HAEMODYNAMIC INSTABILITY [None]
